FAERS Safety Report 17390073 (Version 1)
Quarter: 2020Q1

REPORT INFORMATION
  Report Type: Spontaneous
  Country: US (occurrence: US)
  Receive Date: 20200123
  Receipt Date: 20200123
  Transmission Date: 20200409
  Serious: Yes (Life-Threatening, Hospitalization, Other)
  Sender: FDA-Public Use
  Company Number: None

PATIENT
  Age: 44 Year
  Sex: Male
  Weight: 120.66 kg

DRUGS (1)
  1. FARXIGA [Suspect]
     Active Substance: DAPAGLIFLOZIN PROPANEDIOL
     Indication: TYPE 2 DIABETES MELLITUS
     Dosage: ?          QUANTITY:1 TABLET;?
     Route: 048
     Dates: start: 20160807, end: 20180926

REACTIONS (4)
  - Necrotising soft tissue infection [None]
  - Systemic inflammatory response syndrome [None]
  - Abscess [None]
  - Acute kidney injury [None]

NARRATIVE: CASE EVENT DATE: 20170927
